FAERS Safety Report 6088609-3 (Version None)
Quarter: 2009Q1

REPORT INFORMATION
  Report Type: 
  Country: None (occurrence: None)
  Receive Date: 20090224
  Receipt Date: 20090212
  Transmission Date: 20090719
  Serious: Yes (Hospitalization)
  Sender: FDA-Public Use
  Company Number: GB-PFIZER INC-2009170463

PATIENT

DRUGS (4)
  1. DOXYCYCLINE HYCLATE [Suspect]
     Indication: PELVIC INFLAMMATORY DISEASE
     Route: 048
  2. IBUPROFEN [Suspect]
     Indication: PLANTAR FASCIITIS
  3. SPORANOX [Suspect]
     Indication: VULVOVAGINAL CANDIDIASIS
     Route: 048
     Dates: start: 20080131
  4. CLOTRIMAZOLE [Suspect]
     Indication: CANDIDIASIS
     Dosage: FREQUENCY: ONCE,

REACTIONS (5)
  - ARTHRALGIA [None]
  - CANDIDIASIS [None]
  - DRUG EXPOSURE DURING PREGNANCY [None]
  - PELVIC PAIN [None]
  - PLANTAR FASCIITIS [None]
